FAERS Safety Report 14732182 (Version 2)
Quarter: 2018Q3

REPORT INFORMATION
  Report Type: Report from Study
  Country: None (occurrence: US)
  Receive Date: 20180409
  Receipt Date: 20180828
  Transmission Date: 20181010
  Serious: Yes (Other)
  Sender: FDA-Public Use
  Company Number: US-ABBVIE-17K-163-1903513-00

PATIENT
  Age: 55 Year
  Sex: Female

DRUGS (3)
  1. HUMIRA [Suspect]
     Active Substance: ADALIMUMAB
     Indication: COLITIS ULCERATIVE
     Route: 058
     Dates: start: 2018, end: 201807
  2. HUMIRA [Suspect]
     Active Substance: ADALIMUMAB
     Indication: CROHN^S DISEASE
     Route: 058
     Dates: start: 20140106, end: 201805
  3. HUMIRA [Suspect]
     Active Substance: ADALIMUMAB
     Route: 058
     Dates: start: 201808

REACTIONS (32)
  - Intestinal prolapse [Unknown]
  - Bladder prolapse [Unknown]
  - Migraine [Not Recovered/Not Resolved]
  - Infection [Unknown]
  - Nausea [Unknown]
  - Eye swelling [Unknown]
  - Vomiting [Unknown]
  - Allergic respiratory symptom [Unknown]
  - Cystocele [Unknown]
  - Gastric ulcer [Unknown]
  - Respiratory tract congestion [Unknown]
  - Influenza [Unknown]
  - Panic attack [Unknown]
  - Rectocele [Unknown]
  - Sneezing [Unknown]
  - Hypotension [Unknown]
  - Crohn^s disease [Recovered/Resolved]
  - Seasonal allergy [Unknown]
  - Glucose tolerance impaired [Unknown]
  - Dehydration [Unknown]
  - Blood potassium decreased [Unknown]
  - Pneumonia [Unknown]
  - Hypertension [Unknown]
  - Tracheal ulcer [Unknown]
  - White blood cell count decreased [Unknown]
  - Tooth infection [Unknown]
  - Pallor [Unknown]
  - Crohn^s disease [Unknown]
  - Hypersensitivity [Unknown]
  - Sleep apnoea syndrome [Unknown]
  - Colitis ulcerative [Unknown]
  - Sinusitis [Unknown]

NARRATIVE: CASE EVENT DATE: 2017
